FAERS Safety Report 9641070 (Version 1)
Quarter: 2013Q4

REPORT INFORMATION
  Report Type: Spontaneous
  Country: US (occurrence: US)
  Receive Date: 20131023
  Receipt Date: 20131023
  Transmission Date: 20140711
  Serious: Yes (Other)
  Sender: FDA-Public Use
  Company Number: US-TEVA-427820USA

PATIENT
  Age: 34 Year
  Sex: Female

DRUGS (1)
  1. SYNRIBO [Suspect]
     Indication: CHRONIC MYELOID LEUKAEMIA
     Dosage: 2.5 MILLIGRAM DAILY;
     Dates: start: 20130724, end: 2013

REACTIONS (1)
  - Nausea [Unknown]
